FAERS Safety Report 6067840-7 (Version None)
Quarter: 2009Q1

REPORT INFORMATION
  Report Type: 
  Country: None (occurrence: None)
  Receive Date: 20090202
  Receipt Date: 20090122
  Transmission Date: 20090719
  Serious: Yes (Other)
  Sender: FDA-Public Use
  Company Number: CIP08002366

PATIENT
  Age: 90 Year
  Sex: Female

DRUGS (5)
  1. ACTONEL [Suspect]
     Indication: OSTEOPOROSIS
     Dosage: 35 MG ONCE WEEKLY, ORAL
     Route: 048
     Dates: start: 20081019, end: 20081026
  2. LISINOPRIL [Concomitant]
  3. MULTIVITAMIN /00097801/ (ASCORBIC ACID, CALCIUM PANTOTHENATE, ERGOCALC [Concomitant]
  4. CALCIUM (CALCIUM) [Concomitant]
  5. VITAMIN C /00008001/ (ASCORBIC ACID) [Concomitant]

REACTIONS (10)
  - ABASIA [None]
  - ARTHRALGIA [None]
  - DYSSTASIA [None]
  - GENERALISED OEDEMA [None]
  - JOINT RANGE OF MOTION DECREASED [None]
  - OEDEMA PERIPHERAL [None]
  - TEMPOROMANDIBULAR JOINT SYNDROME [None]
  - WALKING AID USER [None]
  - WEIGHT BEARING DIFFICULTY [None]
  - WHEELCHAIR USER [None]
